FAERS Safety Report 8479419-8 (Version None)
Quarter: 2012Q2

REPORT INFORMATION
  Report Type: 
  Country: None (occurrence: None)
  Receive Date: 20120629
  Receipt Date: 20120621
  Transmission Date: 20120825
  Serious: Yes (Death)
  Sender: FDA-Public Use
  Company Number: US-JNJFOC-20120613536

PATIENT

DRUGS (8)
  1. AMPHOTERICIN B [Suspect]
     Indication: HISTOPLASMOSIS
     Route: 065
  2. CYCLOSPORINE [Suspect]
     Indication: HISTOPLASMOSIS
     Route: 065
  3. SIROLIMUS [Suspect]
     Indication: HISTOPLASMOSIS
     Route: 065
  4. AZATHIOPRINE [Suspect]
     Indication: HISTOPLASMOSIS
     Route: 065
  5. TACROLIMUS [Suspect]
     Indication: HISTOPLASMOSIS
     Route: 065
  6. MYCOPHENOLATE MOFETIL [Suspect]
     Indication: HISTOPLASMOSIS
     Route: 065
  7. ITRACONAZOLE [Suspect]
     Indication: HISTOPLASMOSIS
     Dosage: ONCE OR TWICE DAILY FOR A MEDIAN DURATION OF 8 MONTHS (RANGE 1-13)
     Route: 065
  8. CORTICOSTEROIDS [Suspect]
     Indication: HISTOPLASMOSIS
     Route: 065

REACTIONS (1)
  - HISTOPLASMOSIS [None]
